FAERS Safety Report 23230922 (Version 1)
Quarter: 2023Q4

REPORT INFORMATION
  Report Type: Report from Study
  Country: US (occurrence: None)
  Receive Date: 20231127
  Receipt Date: 20231127
  Transmission Date: 20240109
  Serious: Yes (Hospitalization)
  Sender: FDA-Public Use
  Company Number: US-ROCHE-3451273

PATIENT
  Age: 50 Year
  Sex: Male
  Weight: 87.3 kg

DRUGS (23)
  1. OCRELIZUMAB [Suspect]
     Active Substance: OCRELIZUMAB
     Indication: Multiple sclerosis
     Dosage: ON 16/AUG/2023, HE RECEIVED MOST RECENT DOSE (603.2 MG) OF OCRELIZUMAB PRIOR TO AE/SAE.
     Route: 042
     Dates: start: 20220831
  2. OCRELIZUMAB [Suspect]
     Active Substance: OCRELIZUMAB
     Dosage: 100ML/H
     Route: 042
     Dates: start: 20230222, end: 20230222
  3. OCRELIZUMAB [Suspect]
     Active Substance: OCRELIZUMAB
     Dosage: 100ML/H
     Route: 042
     Dates: start: 20230816, end: 20230816
  4. ALKA SELTZER (UNITED STATES) [Concomitant]
     Indication: Gastrooesophageal reflux disease
     Dosage: DOSE 1 TABLET
     Route: 048
     Dates: start: 2006
  5. CYMBALTA [Concomitant]
     Active Substance: DULOXETINE HYDROCHLORIDE
     Indication: Depression
     Route: 048
     Dates: start: 20200901
  6. MELOXICAM [Concomitant]
     Active Substance: MELOXICAM
     Indication: Osteoarthritis
     Route: 048
     Dates: start: 202101
  7. CRESTOR [Concomitant]
     Active Substance: ROSUVASTATIN CALCIUM
     Indication: Hyperlipidaemia
     Route: 048
     Dates: start: 202101
  8. LISINOPRIL [Concomitant]
     Active Substance: LISINOPRIL
     Indication: Hypertension
     Route: 048
     Dates: start: 20230228
  9. LISINOPRIL [Concomitant]
     Active Substance: LISINOPRIL
     Route: 048
     Dates: start: 20230228
  10. BACLOFEN [Concomitant]
     Active Substance: BACLOFEN
     Route: 048
     Dates: start: 20201029
  11. LYRICA [Concomitant]
     Active Substance: PREGABALIN
     Indication: Back pain
     Route: 048
     Dates: start: 20230228
  12. TIZANIDINE [Concomitant]
     Active Substance: TIZANIDINE
     Route: 048
     Dates: start: 202307
  13. HYDROCODONE [Concomitant]
     Active Substance: HYDROCODONE
     Dosage: STRENGTH (7.5 MG /325 MG) AND DOSE WAS 1 TABLET
     Route: 048
     Dates: start: 2023
  14. SODIUM CHLORIDE [Concomitant]
     Active Substance: SODIUM CHLORIDE
     Indication: Dehydration
     Route: 042
     Dates: start: 20230909, end: 20230909
  15. POTASSIUM CHLORIDE [Concomitant]
     Active Substance: POTASSIUM CHLORIDE
     Indication: Dehydration
     Dates: start: 20230911, end: 20230914
  16. SOLU-MEDROL [Concomitant]
     Active Substance: METHYLPREDNISOLONE SODIUM SUCCINATE
     Indication: Interstitial lung disease
     Route: 042
     Dates: start: 20231103, end: 20231105
  17. SOLU-MEDROL [Concomitant]
     Active Substance: METHYLPREDNISOLONE SODIUM SUCCINATE
     Route: 042
     Dates: start: 20231106, end: 20231108
  18. PREDNISONE [Concomitant]
     Active Substance: PREDNISONE
     Indication: Interstitial lung disease
     Route: 048
     Dates: start: 20231109, end: 20231113
  19. PEPCID [Concomitant]
     Active Substance: FAMOTIDINE
     Route: 048
     Dates: start: 20231113
  20. NOVOLOG [Concomitant]
     Active Substance: INSULIN ASPART
     Dosage: 1 OTHER
     Route: 058
     Dates: start: 20231113
  21. AZITHROMYCIN [Concomitant]
     Active Substance: AZITHROMYCIN
     Indication: Interstitial lung disease
     Route: 042
     Dates: start: 20231104, end: 20231105
  22. BACTRIM DS [Concomitant]
     Active Substance: SULFAMETHOXAZOLE\TRIMETHOPRIM
     Dates: start: 20230817, end: 20230823
  23. CELLCEPT [Concomitant]
     Active Substance: MYCOPHENOLATE MOFETIL
     Indication: Interstitial lung disease
     Route: 048
     Dates: start: 20231113

REACTIONS (1)
  - Urinary tract infection [Recovered/Resolved]

NARRATIVE: CASE EVENT DATE: 20231016
